FAERS Safety Report 8083731-4 (Version None)
Quarter: 2012Q1

REPORT INFORMATION
  Report Type: 
  Country: None (occurrence: None)
  Receive Date: 20120127
  Receipt Date: 20110120
  Transmission Date: 20120608
  Serious: No
  Sender: FDA-Public Use
  Company Number: US-ABBOTT-11P-163-0700130-00

PATIENT
  Age: 33 Year
  Sex: Female

DRUGS (4)
  1. ALBUTEROL [Concomitant]
     Indication: ASTHMA
  2. SYNTHROID [Concomitant]
     Indication: HYPOTHYROIDISM
  3. SYNTHROID [Concomitant]
     Indication: PRODUCT USED FOR UNKNOWN INDICATION
  4. HUMIRA [Suspect]
     Indication: CROHN'S DISEASE
     Dates: start: 20080601

REACTIONS (1)
  - PSORIASIS [None]
